FAERS Safety Report 25534539 (Version 1)
Quarter: 2025Q3

REPORT INFORMATION
  Report Type: Spontaneous
  Country: US (occurrence: None)
  Receive Date: 20250708
  Receipt Date: 20250708
  Transmission Date: 20251021
  Serious: No
  Sender: FDA-CTU
  Company Number: None

PATIENT
  Sex: Female

DRUGS (1)
  1. DEFERASIROX [Suspect]
     Active Substance: DEFERASIROX
     Indication: Sickle cell disease
     Dosage: FREQUENCY : TWICE A DAY;?
     Route: 048
     Dates: start: 20200404

REACTIONS (3)
  - Sickle cell anaemia with crisis [None]
  - Therapy interrupted [None]
  - Product availability issue [None]
